FAERS Safety Report 4715614-9 (Version None)
Quarter: 2005Q3

REPORT INFORMATION
  Report Type: 
  Country: None (occurrence: None)
  Receive Date: 20050713
  Receipt Date: 20050708
  Transmission Date: 20060218
  Serious: Yes (Death, Hospitalization, Other)
  Sender: FDA-Public Use
  Company Number: 01/00078-FRA

PATIENT
  Age: 62 Year
  Sex: Male
  Weight: 85 kg

DRUGS (9)
  1. FLUDARA [Suspect]
     Indication: CHRONIC LYMPHOCYTIC LEUKAEMIA
     Dosage: 30 MG/M2, 2 CYCLES X 5D, ORAL
     Route: 048
     Dates: start: 20001208, end: 20010123
  2. CYCLOPHOSPHAMIDE [Suspect]
     Indication: CHRONIC LYMPHOCYTIC LEUKAEMIA
     Dosage: 200 MG/M2, 2 CYCLES X 5D, UNK
     Dates: start: 20001208, end: 20010123
  3. ZOPHREN (ONDANESTRON HYDROCHLORIDE) [Concomitant]
  4. LEXOMIL (BROMAZEPAM) [Concomitant]
  5. OMEPRAZOLE [Concomitant]
  6. STILNOX     /FRA/(ZOLPIDEM) [Concomitant]
  7. PAROXETINE HYDROCHLORIDE [Concomitant]
  8. CORTANCYL [Concomitant]
  9. TRANSIPEG     /FRA/(MACROGOL) [Concomitant]

REACTIONS (12)
  - CHOLESTASIS [None]
  - COUGH [None]
  - CYTOLYTIC HEPATITIS [None]
  - FOCAL NODULAR HYPERPLASIA [None]
  - HEPATIC FUNCTION ABNORMAL [None]
  - LYMPHOCYTOSIS [None]
  - MALIGNANT NEOPLASM PROGRESSION [None]
  - MONOCYTE COUNT INCREASED [None]
  - NEUTROPENIA [None]
  - PYREXIA [None]
  - STAPHYLOCOCCAL INFECTION [None]
  - THROMBOCYTOPENIA [None]
